FAERS Safety Report 9084921 (Version 1)
Quarter: 2013Q1

REPORT INFORMATION
  Report Type: Spontaneous
  Country: BR (occurrence: BR)
  Receive Date: 20130130
  Receipt Date: 20130130
  Transmission Date: 20140127
  Serious: Yes (Hospitalization, Other)
  Sender: FDA-Public Use
  Company Number: PHHY2013BR007641

PATIENT
  Sex: Male
  Weight: 40 kg

DRUGS (4)
  1. EXJADE [Suspect]
     Indication: SERUM FERRITIN DECREASED
     Dosage: 2 DF, UNK
  2. HYDROXYUREA [Concomitant]
  3. FOLIC ACID [Concomitant]
  4. DESFERAL [Concomitant]

REACTIONS (4)
  - Chest pain [Recovering/Resolving]
  - Abdominal pain upper [Recovering/Resolving]
  - Vomiting [Recovering/Resolving]
  - Dysgeusia [Recovering/Resolving]
